FAERS Safety Report 23391789 (Version 2)
Quarter: 2024Q1

REPORT INFORMATION
  Report Type: Spontaneous
  Country: US (occurrence: US)
  Receive Date: 20240111
  Receipt Date: 20240203
  Transmission Date: 20240410
  Serious: Yes (Hospitalization)
  Sender: FDA-Public Use
  Company Number: US-IPSEN Group, Research and Development-2024-00327

PATIENT
  Age: 54 Year
  Sex: Male
  Weight: 99.79 kg

DRUGS (11)
  1. TAZVERIK [Suspect]
     Active Substance: TAZEMETOSTAT HYDROBROMIDE
     Indication: Follicular lymphoma stage I
     Dosage: BID
     Route: 048
     Dates: start: 20210501
  2. ALLOPURINOL [Concomitant]
     Active Substance: ALLOPURINOL
  3. AMARYL [Concomitant]
     Active Substance: GLIMEPIRIDE
  4. ASPIRIN [Concomitant]
     Active Substance: ASPIRIN
  5. FOLIC ACID [Concomitant]
     Active Substance: FOLIC ACID
  6. LISINOPRIL [Concomitant]
     Active Substance: LISINOPRIL
  7. METFORMIN [Concomitant]
     Active Substance: METFORMIN HYDROCHLORIDE
  8. SYNTHROID [Concomitant]
     Active Substance: LEVOTHYROXINE SODIUM
  9. VITAMIN B12 [Concomitant]
     Active Substance: CYANOCOBALAMIN
  10. IBRUTINIB [Concomitant]
     Active Substance: IBRUTINIB
  11. IRON [Concomitant]
     Active Substance: IRON

REACTIONS (4)
  - Anaemia [Not Recovered/Not Resolved]
  - Infection [Unknown]
  - Constipation [Not Recovered/Not Resolved]
  - Disease progression [Unknown]
